FAERS Safety Report 5816589-1 (Version None)
Quarter: 2008Q3

REPORT INFORMATION
  Report Type: 
  Country: None (occurrence: None)
  Receive Date: 20080721
  Receipt Date: 20080708
  Transmission Date: 20090109
  Serious: Yes (Other)
  Sender: FDA-Public Use
  Company Number: BR-ROCHE-575237

PATIENT
  Age: 50 Year
  Sex: Male

DRUGS (2)
  1. TAMIFLU [Suspect]
     Route: 065
     Dates: start: 20080101, end: 20080101
  2. ACETAMINOPHEN [Suspect]
     Route: 065
     Dates: start: 20080101, end: 20080101

REACTIONS (1)
  - RENAL PAPILLARY NECROSIS [None]
